FAERS Safety Report 5105878-4 (Version None)
Quarter: 2006Q3

REPORT INFORMATION
  Report Type: 
  Country: None (occurrence: None)
  Receive Date: 20060915
  Receipt Date: 20060905
  Transmission Date: 20061208
  Serious: Yes (Death, Hospitalization)
  Sender: FDA-Public Use
  Company Number: FR-GLAXOSMITHKLINE-B0437825A

PATIENT
  Age: 54 Year
  Sex: Female
  Weight: 59 kg

DRUGS (6)
  1. ZOPHREN [Suspect]
     Dosage: 8MG PER DAY
     Route: 042
     Dates: start: 20060724, end: 20060726
  2. ATROPINE [Suspect]
     Dosage: .25MG PER DAY
     Route: 058
     Dates: start: 20060724, end: 20060724
  3. ELVORINE [Suspect]
     Indication: PERITONEAL CARCINOMA
     Dosage: 100MG PER DAY
     Route: 042
     Dates: start: 20060724, end: 20060725
  4. CAMPTOSAR [Suspect]
     Indication: PERITONEAL CARCINOMA
     Dosage: 150MG PER DAY
     Route: 042
     Dates: start: 20060724, end: 20060724
  5. AVASTIN [Suspect]
     Indication: PERITONEAL CARCINOMA
     Dosage: 5MG PER DAY
     Route: 042
     Dates: start: 20060726, end: 20060726
  6. FLUOROURACIL [Suspect]
     Indication: PERITONEAL CARCINOMA
     Route: 042
     Dates: start: 20060724, end: 20060725

REACTIONS (7)
  - ANURIA [None]
  - BLOOD LACTATE DEHYDROGENASE INCREASED [None]
  - DEATH [None]
  - OLIGURIA [None]
  - RENAL FAILURE ACUTE [None]
  - RENAL TUBULAR NECROSIS [None]
  - RENAL VEIN THROMBOSIS [None]
